FAERS Safety Report 16680432 (Version 2)
Quarter: 2019Q3

REPORT INFORMATION
  Report Type: Spontaneous
  Country: AU (occurrence: AU)
  Receive Date: 20190807
  Receipt Date: 20190906
  Transmission Date: 20191004
  Serious: Yes (Other)
  Sender: FDA-Public Use
  Company Number: PHHY2019AU181881

PATIENT
  Age: 28 Year
  Sex: Female

DRUGS (1)
  1. COSENTYX [Suspect]
     Active Substance: SECUKINUMAB
     Indication: ANKYLOSING SPONDYLITIS
     Dosage: 150 MG, QW
     Route: 058
     Dates: start: 20190702, end: 20190801

REACTIONS (7)
  - Lower gastrointestinal haemorrhage [Unknown]
  - Diarrhoea [Unknown]
  - Inflammatory bowel disease [Unknown]
  - Abdominal pain [Unknown]
  - Haematochezia [Unknown]
  - Gastrointestinal disorder [Unknown]
  - Mucous stools [Unknown]

NARRATIVE: CASE EVENT DATE: 20190801
